FAERS Safety Report 5708242-X (Version None)
Quarter: 2008Q2

REPORT INFORMATION
  Report Type: 
  Country: None (occurrence: None)
  Receive Date: 20080417
  Receipt Date: 20080409
  Transmission Date: 20081010
  Serious: Yes (Hospitalization)
  Sender: FDA-Public Use
  Company Number: IT-ROCHE-557743

PATIENT
  Age: 51 Year
  Sex: Female

DRUGS (5)
  1. DIAZEPAM [Suspect]
     Indication: INSOMNIA
     Route: 048
  2. FENOTEROL/IPRATROPIUM [Concomitant]
     Indication: ASTHMA
     Dosage: DRUG REPORTED AS FENOTEROL IPRATROPIUM.
     Route: 055
  3. FENOTEROL/IPRATROPIUM [Concomitant]
     Dosage: DRUG REPORTED AS FENOTEROL IPRATROPIUM.
     Route: 055
  4. MONTELUKAST SODIUM [Concomitant]
     Indication: ASTHMA
     Route: 048
  5. TEOFILLINA [Concomitant]
     Indication: ASTHMA
     Dosage: DRUG REPORTED AS TEOFILLIN.
     Route: 048

REACTIONS (2)
  - COMA [None]
  - RESPIRATORY FAILURE [None]
